FAERS Safety Report 9672007 (Version 9)
Quarter: 2015Q4

REPORT INFORMATION
  Report Type: Spontaneous
  Country: US (occurrence: US)
  Receive Date: 20131106
  Receipt Date: 20151120
  Transmission Date: 20160305
  Serious: Yes (Death, Hospitalization, Other)
  Sender: FDA-Public Use
  Company Number: US-GLAXOSMITHKLINE-A1048362A

PATIENT
  Age: 64 Year
  Sex: Female

DRUGS (7)
  1. FLOLAN [Suspect]
     Active Substance: EPOPROSTENOL SODIUM
     Indication: PULMONARY ARTERIAL HYPERTENSION
     Dosage: 60,000 NG/ML CONCENTRATION, 1.5 MG VIAL STRENGTH
     Route: 042
     Dates: start: 20100308
  2. REVATIO [Concomitant]
     Active Substance: SILDENAFIL CITRATE
  3. FLOLAN [Suspect]
     Active Substance: EPOPROSTENOL SODIUM
     Dosage: 82 NG/KG/MIN, CO
  4. FLOLAN [Suspect]
     Active Substance: EPOPROSTENOL SODIUM
     Dosage: 82 NG/KG/MINUTE, CO
     Route: 042
  5. COUMADIN [Concomitant]
     Active Substance: WARFARIN SODIUM
  6. FLOLAN [Suspect]
     Active Substance: EPOPROSTENOL SODIUM
     Dosage: 82 NG/KG/MIN CONTINUOUS
  7. FLOLAN [Suspect]
     Active Substance: EPOPROSTENOL SODIUM
     Dosage: 85 NG/KG/MIN (CONCENTRATION 75,000 NG/ML, PUMP RATE 83 ML/DAY, VIAL STRENGTH 1.5 MG), CO
     Route: 042

REACTIONS (6)
  - Loss of consciousness [Unknown]
  - Herpes zoster [Unknown]
  - Medical device complication [Recovered/Resolved]
  - Device dislocation [None]
  - Syncope [Unknown]
  - Death [Fatal]

NARRATIVE: CASE EVENT DATE: 20131031
